FAERS Safety Report 17987649 (Version 1)
Quarter: 2020Q3

REPORT INFORMATION
  Report Type: Report from Study
  Country: ES (occurrence: ES)
  Receive Date: 20200707
  Receipt Date: 20200707
  Transmission Date: 20201103
  Serious: Yes (Other)
  Sender: FDA-Public Use
  Company Number: ES-ROCHE-2635436

PATIENT

DRUGS (1)
  1. TOCILIZUMAB. [Suspect]
     Active Substance: TOCILIZUMAB
     Indication: COVID-19 PNEUMONIA
     Route: 042

REACTIONS (12)
  - Klebsiella infection [Unknown]
  - Off label use [Unknown]
  - Hyperkalaemia [Unknown]
  - Blood bilirubin increased [Unknown]
  - Headache [Unknown]
  - Candida infection [Unknown]
  - Pseudomonas infection [Unknown]
  - Intentional product use issue [Unknown]
  - Hepatic enzyme increased [Unknown]
  - Blood creatinine increased [Unknown]
  - Aspergillus infection [Unknown]
  - Enterococcal infection [Unknown]
